FAERS Safety Report 8842175 (Version 3)
Quarter: 2012Q4

REPORT INFORMATION
  Report Type: 
  Country: DE (occurrence: DE)
  Receive Date: 20121016
  Receipt Date: 20121122
  Transmission Date: 20130627
  Serious: Yes (Other)
  Sender: FDA-Public Use
  Company Number: PHHY2012DE091354

PATIENT
  Sex: Female

DRUGS (4)
  1. ACLASTA [Suspect]
     Indication: OSTEOPOROSIS
     Dosage: 5 mg, once yearly
     Route: 042
  2. ACLASTA [Suspect]
     Dosage: 5 mg, once yearly
     Route: 042
  3. ACLASTA [Suspect]
     Dosage: 5 mg, once yearly
     Route: 042
  4. ACLASTA [Suspect]
     Dosage: 5 mg, once yearly
     Route: 042
     Dates: start: 201203

REACTIONS (2)
  - Breast cancer [Unknown]
  - Pulpitis dental [Unknown]
